FAERS Safety Report 7708762-2 (Version None)
Quarter: 2011Q3

REPORT INFORMATION
  Report Type: 
  Country: None (occurrence: None)
  Receive Date: 20110825
  Receipt Date: 20110825
  Transmission Date: 20111222
  Serious: Yes (Other)
  Sender: FDA-Public Use
  Company Number: None

PATIENT
  Sex: Female
  Weight: 42.637 kg

DRUGS (1)
  1. BONIVA [Suspect]
     Indication: OSTEOPOROSIS
     Dosage: 3 MGM
     Route: 040
     Dates: start: 20080127, end: 20091216

REACTIONS (4)
  - FALL [None]
  - BONE DENSITY DECREASED [None]
  - FEMUR FRACTURE [None]
  - PATELLA FRACTURE [None]
